FAERS Safety Report 4815340-1 (Version None)
Quarter: 2005Q4

REPORT INFORMATION
  Report Type: 
  Country: None (occurrence: None)
  Receive Date: 20051027
  Receipt Date: 20051014
  Transmission Date: 20060501
  Serious: Yes (Death)
  Sender: FDA-Public Use
  Company Number: MK200510-0160-1

PATIENT
  Age: 79 Year
  Sex: Male
  Weight: 39.0093 kg

DRUGS (19)
  1. OXYCODONE HCL [Suspect]
     Indication: PAIN
     Dosage: 5 MG, PRN, PO
     Route: 048
     Dates: start: 20050215, end: 20050905
  2. CEP-7055 [Suspect]
     Indication: MESOTHELIOMA
     Dosage: 240 MG TID, PO
     Route: 048
     Dates: start: 20050420, end: 20050908
  3. OXYCODONE [Suspect]
     Dosage: 15 MG Q4H
     Dates: start: 20050906, end: 20050908
  4. OXYCONTIN [Suspect]
     Indication: PAIN
     Dosage: 70 MG QD, PO
     Route: 048
     Dates: start: 20050201, end: 20050711
  5. OXYCONTIN [Suspect]
     Dosage: 70 MG Q12H
     Dates: start: 20050712, end: 20050908
  6. IBUPROFEN [Suspect]
     Dosage: 800 MG TID
     Dates: start: 20050906, end: 20050914
  7. VERAPAMIL [Concomitant]
  8. TRIAMTERENE AND HYDROCHLOROTHIAZIDE [Concomitant]
  9. VITAMIN SUPPLEMENTS [Concomitant]
  10. AMBIEN [Concomitant]
  11. LORAZEPAM [Concomitant]
  12. REGLAN [Concomitant]
  13. ZANTAC [Concomitant]
  14. DECADRON SRC [Concomitant]
  15. DONNATAL [Concomitant]
  16. TOPROL-XL [Concomitant]
  17. LISINOPRIL [Concomitant]
  18. MORPHINE [Concomitant]
  19. ATIVAN [Concomitant]

REACTIONS (9)
  - ANXIETY [None]
  - CONDITION AGGRAVATED [None]
  - CONFUSIONAL STATE [None]
  - DYSPNOEA [None]
  - MENTAL STATUS CHANGES [None]
  - MESOTHELIOMA [None]
  - METASTATIC NEOPLASM [None]
  - PNEUMONIA [None]
  - SOMNOLENCE [None]
